FAERS Safety Report 19169958 (Version 3)
Quarter: 2021Q3

REPORT INFORMATION
  Report Type: Spontaneous
  Country: IN (occurrence: IN)
  Receive Date: 20210422
  Receipt Date: 20210707
  Transmission Date: 20211014
  Serious: Yes (Other)
  Sender: FDA-Public Use
  Company Number: IN-PFIZER INC-2020144319

PATIENT
  Age: 64 Year
  Sex: Male

DRUGS (9)
  1. LIMCEE [Concomitant]
     Active Substance: ASCORBIC ACID
     Dosage: UNK, 2X/DAY (1?0?1)
  2. KABIPRO [Concomitant]
     Dosage: UNK, 2 TSF?0?2 TSF
  3. SUTENT [Suspect]
     Active Substance: SUNITINIB MALATE
     Indication: METASTATIC RENAL CELL CARCINOMA
     Dosage: 50 MG, CYCLIC (ONCE A DAY 1?0?0 FOR 28 DAYS ON AND 14 DAYS OFF))
     Route: 048
     Dates: start: 20190121
  4. BETADINE [Concomitant]
     Active Substance: POVIDONE-IODINE
     Dosage: UNK, GARGLE 10 TIMES DAY
  5. PAN?D [Concomitant]
     Active Substance: DOMPERIDONE\PANTOPRAZOLE SODIUM
     Dosage: UNK, 2X/DAY (1?0?1)
  6. GRANIFORCE [Concomitant]
     Dosage: 1 MG, 1X/DAY (1?0?0)
  7. BECOSULES [ASCORBIC ACID;VITAMIN B NOS] [Concomitant]
     Dosage: UNK, 1X/DAY (1?0?0)
  8. CALDIKIND PLUS [Concomitant]
     Dosage: UNK, 1X/DAY (1?0?0)
  9. FERONIA XT [Concomitant]
     Dosage: UNK, 2X/DAY (1?0?1)

REACTIONS (4)
  - Asthenia [Unknown]
  - Oral disorder [Recovering/Resolving]
  - Oedema peripheral [Unknown]
  - Gastric antral vascular ectasia [Unknown]
